FAERS Safety Report 4887616-3 (Version None)
Quarter: 2006Q1

REPORT INFORMATION
  Report Type: 
  Country: None (occurrence: None)
  Receive Date: 20060123
  Receipt Date: 20060116
  Transmission Date: 20060701
  Serious: Yes (Hospitalization)
  Sender: FDA-Public Use
  Company Number: FR-BRISTOL-MYERS SQUIBB COMPANY-13248224

PATIENT
  Sex: Female

DRUGS (3)
  1. SUSTIVA [Suspect]
     Route: 048
     Dates: end: 20051107
  2. EMTRIVA [Suspect]
  3. VIREAD [Suspect]

REACTIONS (1)
  - MENTAL DISORDER [None]
